FAERS Safety Report 24458935 (Version 1)
Quarter: 2024Q4

REPORT INFORMATION
  Report Type: Spontaneous
  Country: US (occurrence: None)
  Receive Date: 20241017
  Receipt Date: 20241017
  Transmission Date: 20250114
  Serious: Yes (Hospitalization)
  Sender: Public
  Company Number: None

PATIENT
  Age: 59 Year
  Sex: Male

DRUGS (3)
  1. LITHIUM CARBONATE [Suspect]
     Active Substance: LITHIUM CARBONATE
     Dosage: FREQUENCY : AT BEDTIME;?
     Route: 048
     Dates: start: 20080522, end: 20240121
  2. IBUPROFEN [Suspect]
     Active Substance: IBUPROFEN
  3. ROPINIROLE [Suspect]
     Active Substance: ROPINIROLE

REACTIONS (7)
  - Confusional state [None]
  - Sedation [None]
  - Pyrexia [None]
  - Suicide attempt [None]
  - Intentional overdose [None]
  - Septic shock [None]
  - Pneumonia aspiration [None]

NARRATIVE: CASE EVENT DATE: 20240121
